FAERS Safety Report 18575247 (Version 1)
Quarter: 2020Q4

REPORT INFORMATION
  Report Type: Spontaneous
  Country: FR (occurrence: FR)
  Receive Date: 20201203
  Receipt Date: 20201203
  Transmission Date: 20210114
  Serious: Yes (Hospitalization)
  Sender: FDA-Public Use
  Company Number: FR-TAKEDA-2020TEU010750

PATIENT
  Age: 56 Year
  Sex: Male
  Weight: 90 kg

DRUGS (11)
  1. BISOPROLOL FUMARATE. [Interacting]
     Active Substance: BISOPROLOL FUMARATE
     Indication: PRODUCT USED FOR UNKNOWN INDICATION
     Dosage: 5 MILLIGRAM, QD
     Route: 048
  2. MIANSERINE [MIANSERIN HYDROCHLORIDE] [Interacting]
     Active Substance: MIANSERIN HYDROCHLORIDE
     Indication: PRODUCT USED FOR UNKNOWN INDICATION
     Dosage: UNK
     Route: 048
  3. MARINOL [ALLOPURINOL] [Interacting]
     Active Substance: ALLOPURINOL
     Indication: NEURALGIA
  4. TRIFLUCAN [Interacting]
     Active Substance: FLUCONAZOLE
     Indication: OESOPHAGEAL CANDIDIASIS
     Dosage: 100 MILLIGRAM, QD
     Route: 048
     Dates: start: 202009
  5. MARINOL [ALLOPURINOL] [Interacting]
     Active Substance: ALLOPURINOL
     Indication: NEURALGIA
     Dosage: 2.5 MILLIGRAM, QD
     Route: 048
     Dates: start: 20200717, end: 20201002
  6. KETODERM [KETOCONAZOLE] [Concomitant]
     Indication: CANDIDA INFECTION
     Dosage: UNK
     Route: 003
  7. ATARAX [Interacting]
     Active Substance: HYDROXYZINE HYDROCHLORIDE
     Indication: STRESS
     Dosage: 25 MILLIGRAM, QD
     Route: 048
  8. BILASKA [Interacting]
     Active Substance: BILASTINE
     Indication: HYPERSENSITIVITY
     Dosage: 20 MILLIGRAM, QD
     Route: 048
  9. ALLERGODIL [Concomitant]
     Active Substance: AZELASTINE
     Indication: HYPERSENSITIVITY
     Dosage: UNK
     Route: 047
  10. ALLERGODIL [Concomitant]
     Active Substance: AZELASTINE
     Indication: HYPERSENSITIVITY
     Dosage: UNK
     Route: 047
  11. LANSOPRAZOLE. [Suspect]
     Active Substance: LANSOPRAZOLE
     Indication: HIATUS HERNIA
     Dosage: 30 MILLIGRAM, QD
     Route: 048

REACTIONS (4)
  - Drug interaction [Recovered/Resolved]
  - Off label use [Not Recovered/Not Resolved]
  - Vertigo [Recovered/Resolved]
  - Paraesthesia [Recovered/Resolved]

NARRATIVE: CASE EVENT DATE: 20200929
